FAERS Safety Report 5282577-X (Version None)
Quarter: 2007Q1

REPORT INFORMATION
  Report Type: 
  Country: None (occurrence: None)
  Receive Date: 20070326
  Receipt Date: 20070316
  Transmission Date: 20070707
  Serious: Yes (Hospitalization)
  Sender: FDA-Public Use
  Company Number: 2006BI016236

PATIENT
  Age: 51 Year
  Sex: Female

DRUGS (11)
  1. AVONEX [Suspect]
     Indication: MULTIPLE SCLEROSIS
     Dosage: 30 UG;QW;IM
     Route: 030
     Dates: start: 20050827
  2. FOSAMAX [Concomitant]
  3. ASPIRIN [Concomitant]
  4. ADVAIR DISKUS 100/50 [Concomitant]
  5. ALBUTEROL [Concomitant]
  6. PERCOCET [Concomitant]
  7. ANTIVERT [Concomitant]
  8. APAP TAB [Concomitant]
  9. PREDNISOLONE [Concomitant]
  10. CEPHALEXIN [Concomitant]
  11. METHYLPREDNISOLONE [Concomitant]

REACTIONS (3)
  - INTERVERTEBRAL DISC OPERATION [None]
  - MUSCULOSKELETAL PAIN [None]
  - NECK PAIN [None]
